FAERS Safety Report 24872900 (Version 1)
Quarter: 2025Q1

REPORT INFORMATION
  Report Type: Spontaneous
  Country: US (occurrence: US)
  Receive Date: 20250122
  Receipt Date: 20250122
  Transmission Date: 20250408
  Serious: Yes (Other)
  Sender: MYLAN
  Company Number: US-MYLANLABS-2025M1003998

PATIENT
  Age: 76 Year
  Sex: Female

DRUGS (5)
  1. LOPERAMIDE [Suspect]
     Active Substance: LOPERAMIDE
     Indication: Diarrhoea
     Route: 065
  2. PSYLLIUM [Suspect]
     Active Substance: PLANTAGO SEED
     Indication: Diarrhoea
     Route: 065
  3. DICYCLOMINE [Suspect]
     Active Substance: DICYCLOMINE HYDROCHLORIDE
     Indication: Diarrhoea
     Route: 065
  4. Immunoglobulin [Concomitant]
     Indication: Norovirus infection
     Route: 042
  5. Immunoglobulin [Concomitant]
     Indication: Hypogammaglobulinaemia
     Route: 042

REACTIONS (1)
  - Drug ineffective [Unknown]
